FAERS Safety Report 20612260 (Version 1)
Quarter: 2022Q1

REPORT INFORMATION
  Report Type: Spontaneous
  Country: US (occurrence: None)
  Receive Date: 20220318
  Receipt Date: 20220318
  Transmission Date: 20220423
  Serious: Yes (Other)
  Sender: FDA-Public Use
  Company Number: None

PATIENT
  Age: 52 Year
  Sex: Female
  Weight: 90 kg

DRUGS (14)
  1. OZEMPIC [Suspect]
     Active Substance: SEMAGLUTIDE
     Indication: Diabetes mellitus
     Dosage: OTHER FREQUENCY : ONCE A WEEK;?
  2. GABAPENTIN [Concomitant]
     Active Substance: GABAPENTIN
  3. METFORMIN [Concomitant]
     Active Substance: METFORMIN HYDROCHLORIDE
  4. LYRICA [Concomitant]
     Active Substance: PREGABALIN
  5. FLUOXETINE [Concomitant]
     Active Substance: FLUOXETINE HYDROCHLORIDE
  6. CYMBALTA [Concomitant]
     Active Substance: DULOXETINE HYDROCHLORIDE
  7. SIMVASTATIN [Concomitant]
  8. FENOFIBRATE [Concomitant]
     Active Substance: FENOFIBRATE
  9. TOPAMAX [Concomitant]
     Active Substance: TOPIRAMATE
  10. ALDACTONE [Concomitant]
     Active Substance: SPIRONOLACTONE
  11. JANUVIA [Concomitant]
     Active Substance: SITAGLIPTIN PHOSPHATE
  12. CRESTOR [Concomitant]
     Active Substance: ROSUVASTATIN CALCIUM
  13. MOTRIN [Concomitant]
     Active Substance: IBUPROFEN
  14. PEPCID [Concomitant]
     Active Substance: FAMOTIDINE

REACTIONS (5)
  - Flatulence [None]
  - Abdominal pain upper [None]
  - Eructation [None]
  - Flatulence [None]
  - Hypophagia [None]

NARRATIVE: CASE EVENT DATE: 20220226
